FAERS Safety Report 15402151 (Version 6)
Quarter: 2023Q4

REPORT INFORMATION
  Report Type: Spontaneous
  Country: PT (occurrence: PT)
  Receive Date: 20180919
  Receipt Date: 20231030
  Transmission Date: 20240110
  Serious: Yes (Death, Hospitalization, Other)
  Sender: FDA-Public Use
  Company Number: PT-PFIZER INC-2018375005

PATIENT
  Age: 56 Year
  Sex: Male

DRUGS (2)
  1. RAMIPRIL [Interacting]
     Active Substance: RAMIPRIL
     Indication: Hypertension
     Dosage: UNK
     Route: 065
  2. RILUZOLE [Interacting]
     Active Substance: RILUZOLE
     Indication: Amyotrophic lateral sclerosis
     Dosage: 50 MG, 2X/DAY
     Route: 065

REACTIONS (2)
  - Drug interaction [Fatal]
  - Pancreatitis necrotising [Fatal]
